FAERS Safety Report 5553691-6 (Version None)
Quarter: 2007Q4

REPORT INFORMATION
  Report Type: 
  Country: None (occurrence: None)
  Receive Date: 20071213
  Receipt Date: 20071204
  Transmission Date: 20080405
  Serious: Yes (Other)
  Sender: FDA-Public Use
  Company Number: US-ROCHE-534785

PATIENT

DRUGS (1)
  1. XELODA [Suspect]
     Indication: DRUG USE FOR UNKNOWN INDICATION
     Dosage: TAKES XELODA TWICE A DAY FOR 10 DAYS THEN REST FOR 7 DAYS THEN TAKE XELODA AGAIN
     Route: 065

REACTIONS (3)
  - COLOSTOMY [None]
  - FISTULA [None]
  - FISTULA DISCHARGE [None]
